FAERS Safety Report 24834370 (Version 1)
Quarter: 2025Q1

REPORT INFORMATION
  Report Type: Spontaneous
  Country: US (occurrence: None)
  Receive Date: 20250110
  Receipt Date: 20250110
  Transmission Date: 20250409
  Serious: No
  Sender: FDA-CTU
  Company Number: None

PATIENT
  Age: 75 Year
  Sex: Male
  Weight: 166 kg

DRUGS (1)
  1. LISINOPRIL [Suspect]
     Active Substance: LISINOPRIL
     Indication: Hypertension

REACTIONS (5)
  - Angioedema [None]
  - Tongue oedema [None]
  - Pruritus [None]
  - Rash [None]
  - Throat tightness [None]

NARRATIVE: CASE EVENT DATE: 20240903
